FAERS Safety Report 5849566-5 (Version None)
Quarter: 2008Q3

REPORT INFORMATION
  Report Type: 
  Country: None (occurrence: None)
  Receive Date: 20080731
  Receipt Date: 20080405
  Transmission Date: 20090109
  Serious: No
  Sender: FDA-Public Use
  Company Number: US200804001545

PATIENT
  Age: 62 Year
  Sex: Female

DRUGS (19)
  1. BYETTA [Suspect]
     Indication: TYPE 2 DIABETES MELLITUS
     Dosage: 5 UG, 2/D, SUBCUTANEOUS
     Route: 058
     Dates: start: 20080401
  2. HUMULIN R [Concomitant]
  3. PRANDIN /USA/ (REPAGLINIDE) [Concomitant]
  4. GLUCOPHAGE /USA/ (METFORMIN HYDROCHLORIDE) [Concomitant]
  5. GLUCOTROL XL [Concomitant]
  6. ASPIRIN /USA/ (ACETYLSALICYLIC ACID) [Concomitant]
  7. AVAPRO [Concomitant]
  8. CADUET (AMLODIPINE BESILATE, ATORVASTATIN CALCIUM) [Concomitant]
  9. CATAPRES /USA/ (CLONIDINE HYDROCHLORIDE) [Concomitant]
  10. EFFEXOR [Concomitant]
  11. FOLIC ACID [Concomitant]
  12. LASIX /USA/ (FUROSEMIDE) [Concomitant]
  13. NEXIUM [Concomitant]
  14. OXYBUTYNIN CHLORIDE [Concomitant]
  15. PHENOBARBITAL TAB [Concomitant]
  16. POTASSIUM CHLORIDE [Concomitant]
  17. SYNTHROID [Concomitant]
  18. MORPHINE [Concomitant]
  19. ANTIBIOTICS [Concomitant]

REACTIONS (3)
  - COUGH [None]
  - INCREASED UPPER AIRWAY SECRETION [None]
  - INJECTION SITE PAIN [None]
